FAERS Safety Report 19986711 (Version 3)
Quarter: 2022Q1

REPORT INFORMATION
  Report Type: Spontaneous
  Country: JP (occurrence: JP)
  Receive Date: 20211022
  Receipt Date: 20220107
  Transmission Date: 20220423
  Serious: Yes (Death, Other)
  Sender: FDA-Public Use
  Company Number: JP-GLAXOSMITHKLINE-JP2021JPN219426

PATIENT
  Sex: Female
  Weight: 35 kg

DRUGS (3)
  1. BENLYSTA [Suspect]
     Active Substance: BELIMUMAB
     Indication: Systemic lupus erythematosus
     Dosage: 200 MG, WE
     Route: 058
     Dates: start: 20210225, end: 20210930
  2. PREDONINE [Concomitant]
     Active Substance: PREDNISOLONE
     Dosage: 10 MG, QD
     Route: 048
     Dates: start: 20011101, end: 20211014
  3. BAKTAR TABLET [Concomitant]
     Indication: Prophylaxis
     Dosage: 1 DF, WE
     Route: 048

REACTIONS (18)
  - Pneumocystis jirovecii pneumonia [Fatal]
  - Respiratory failure [Unknown]
  - Altered state of consciousness [Unknown]
  - Hepatic failure [Unknown]
  - Immunodeficiency [Unknown]
  - Oxygen saturation decreased [Unknown]
  - Urine output decreased [Unknown]
  - Pyrexia [Unknown]
  - Full blood count decreased [Unknown]
  - Sense of oppression [Unknown]
  - Hepatic function abnormal [Unknown]
  - Jaundice [Unknown]
  - Decreased appetite [Unknown]
  - Ascites [Unknown]
  - Multiple organ dysfunction syndrome [Fatal]
  - Hepatomegaly [Fatal]
  - Portal hypertension [Fatal]
  - Condition aggravated [Fatal]

NARRATIVE: CASE EVENT DATE: 20210101
